FAERS Safety Report 4710550-6 (Version None)
Quarter: 2005Q3

REPORT INFORMATION
  Report Type: 
  Country: None (occurrence: None)
  Receive Date: 20050707
  Receipt Date: 20050624
  Transmission Date: 20060218
  Serious: Yes (Hospitalization)
  Sender: FDA-Public Use
  Company Number: 2005089807

PATIENT
  Age: 75 Year
  Sex: Male

DRUGS (5)
  1. DEPO-PROVERA [Suspect]
     Indication: TOXIC SKIN ERUPTION
     Dosage: 40 MG (20 MG, 2 IN 1 D) INTRAVENOUS
     Route: 042
     Dates: start: 20050524, end: 20050603
  2. SOLU-MEDROL [Suspect]
     Indication: DERMATITIS ALLERGIC
     Dosage: 125 MG (1 IN 1 D)
     Dates: start: 20050523
  3. PHENYTOIN [Concomitant]
  4. CIMETIDINE [Concomitant]
  5. KYOMINOTIN (AMINOACETIC ACID, CYSTEINE, GLYCYRRHIZIC ACID) [Concomitant]

REACTIONS (4)
  - DIARRHOEA [None]
  - INCORRECT ROUTE OF DRUG ADMINISTRATION [None]
  - MELAENA [None]
  - RECTAL ULCER [None]
